FAERS Safety Report 17808150 (Version 3)
Quarter: 2020Q3

REPORT INFORMATION
  Report Type: Spontaneous
  Country: ES (occurrence: ES)
  Receive Date: 20200520
  Receipt Date: 20200728
  Transmission Date: 20201102
  Serious: Yes (Hospitalization, Other)
  Sender: FDA-Public Use
  Company Number: NVSC2020ES129943

PATIENT
  Age: 65 Year
  Sex: Male

DRUGS (9)
  1. LOPINAVIR,RITONAVIR [Suspect]
     Active Substance: LOPINAVIR\RITONAVIR
     Indication: COVID-19
  2. HYDROXYCHLOROQUINE SULFATE. [Suspect]
     Active Substance: HYDROXYCHLOROQUINE SULFATE
     Dosage: 800 MG, FOR 24 HOURS STARTED ON DAY 5
     Route: 048
     Dates: start: 202003, end: 2020
  3. LOPINAVIR,RITONAVIR [Suspect]
     Active Substance: LOPINAVIR\RITONAVIR
     Indication: CORONAVIRUS INFECTION
     Dosage: 200/100 MG, BID
     Route: 048
     Dates: start: 202003, end: 2020
  4. HYDROXYCHLOROQUINE SULFATE. [Suspect]
     Active Substance: HYDROXYCHLOROQUINE SULFATE
     Dosage: 400 MG, QD
     Route: 048
     Dates: start: 2020
  5. HYDROXYCHLOROQUINE SULFATE. [Suspect]
     Active Substance: HYDROXYCHLOROQUINE SULFATE
     Indication: CORONAVIRUS INFECTION
     Dosage: 400 MG, BID
     Route: 048
  6. TACROLIMUS. [Suspect]
     Active Substance: TACROLIMUS
     Indication: IMMUNOSUPPRESSANT DRUG THERAPY
  7. MYCOPHENOLIC ACID. [Concomitant]
     Active Substance: MYCOPHENOLIC ACID
     Indication: IMMUNOSUPPRESSION
     Dosage: DOSE REDUCE
     Route: 065
     Dates: start: 202003
  8. TACROLIMUS. [Suspect]
     Active Substance: TACROLIMUS
     Indication: RENAL TRANSPLANT
     Dosage: REDUCE DOSE
     Route: 065
     Dates: start: 202003
  9. HYDROXYCHLOROQUINE SULFATE. [Suspect]
     Active Substance: HYDROXYCHLOROQUINE SULFATE
     Indication: COVID-19
     Dosage: 200 MG, BID (FOR 5?10 DAYS)
     Route: 048

REACTIONS (9)
  - Nephropathy toxic [Unknown]
  - Drug level increased [Unknown]
  - Gastrointestinal disorder [Unknown]
  - Off label use [Unknown]
  - C-reactive protein increased [Unknown]
  - Drug interaction [Unknown]
  - Product use in unapproved indication [Unknown]
  - Renal failure [Unknown]
  - Drug level therapeutic [Unknown]

NARRATIVE: CASE EVENT DATE: 202003
